FAERS Safety Report 4691405-2 (Version None)
Quarter: 2005Q2

REPORT INFORMATION
  Report Type: 
  Country: None (occurrence: None)
  Receive Date: 20050615
  Receipt Date: 20050606
  Transmission Date: 20051028
  Serious: Yes (Hospitalization)
  Sender: FDA-Public Use
  Company Number: GXKR2005SK01185

PATIENT
  Sex: Female

DRUGS (8)
  1. OSPAMOX [Suspect]
     Indication: RESPIRATORY TRACT INFECTION
     Dosage: 2 G, ORAL
     Route: 048
     Dates: start: 20050323, end: 20050329
  2. ORFARIN (WARFARIN) [Concomitant]
  3. PREDUCTAL (TRIMETAZIDINE) [Concomitant]
  4. NITROPELET (GLYCERYL TRINITRATE) [Concomitant]
  5. NOLIPREL  (INDAPAMIDE, PERINDOPRIL ERBUMINE) [Concomitant]
  6. SIMVACARD        (SIMVASTATIN) [Concomitant]
  7. CARVEDILOL [Concomitant]
  8. LEVOTHYROXINE SODIUM [Concomitant]

REACTIONS (3)
  - HAEMATURIA [None]
  - PURPURA [None]
  - RENAL IMPAIRMENT [None]
